FAERS Safety Report 16425575 (Version 2)
Quarter: 2019Q3

REPORT INFORMATION
  Report Type: Spontaneous
  Country: US (occurrence: US)
  Receive Date: 20190613
  Receipt Date: 20190703
  Transmission Date: 20191004
  Serious: No
  Sender: FDA-Public Use
  Company Number: US-PFIZER INC-2019253408

PATIENT
  Age: 58 Year
  Sex: Male

DRUGS (6)
  1. XANAX [Concomitant]
     Active Substance: ALPRAZOLAM
     Dosage: 1 MG, 4X/DAY [1 MG TAKES ONE TABLET THREE - FOUR TIMES A DAY]
  2. AMITRIPTYLINE [Concomitant]
     Active Substance: AMITRIPTYLINE
     Indication: INSOMNIA
     Dosage: 50 MG, UNK (5 OF THESE AT NIGHT.)
  3. AMITRIPTYLINE [Concomitant]
     Active Substance: AMITRIPTYLINE
     Indication: PAIN
  4. MELOXICAM. [Concomitant]
     Active Substance: MELOXICAM
     Indication: ARTHRALGIA
     Dosage: 15 MG, 1X/DAY [ONCE A DAY IN THE MORNING]
  5. XANAX [Concomitant]
     Active Substance: ALPRAZOLAM
     Indication: ATTENTION DEFICIT/HYPERACTIVITY DISORDER
     Dosage: 1 MG, 3X/DAY  [1 MG TAKES ONE TABLET THREE - FOUR TIMES A DAY]
  6. LYRICA [Suspect]
     Active Substance: PREGABALIN
     Indication: PAIN
     Dosage: 100 MG, 3X/DAY [THREE TIMES A DAY BY MOUTH]
     Route: 048

REACTIONS (4)
  - Product use issue [Unknown]
  - Feeling abnormal [Unknown]
  - Off label use [Unknown]
  - Therapeutic product effect delayed [Unknown]
